FAERS Safety Report 14055471 (Version 1)
Quarter: 2017Q4

REPORT INFORMATION
  Report Type: Spontaneous
  Country: RU (occurrence: RU)
  Receive Date: 20171006
  Receipt Date: 20171006
  Transmission Date: 20180321
  Serious: Yes (Hospitalization)
  Sender: FDA-Public Use
  Company Number: RU-ASTRAZENECA-2017SF00546

PATIENT
  Age: 77 Year
  Sex: Female
  Weight: 92 kg

DRUGS (11)
  1. VEROSPIRON [Concomitant]
     Active Substance: SPIRONOLACTONE
  2. BRILINTA [Suspect]
     Active Substance: TICAGRELOR
     Indication: MYOCARDIAL INFARCTION
     Route: 048
     Dates: start: 201702
  3. SOTALOL. [Concomitant]
     Active Substance: SOTALOL
  4. MANINIL [Concomitant]
     Active Substance: GLYBURIDE
  5. ENALAPRIL [Concomitant]
     Active Substance: ENALAPRIL
  6. ROSUVASTATIN. [Concomitant]
     Active Substance: ROSUVASTATIN
  7. AMLODIPINE [Concomitant]
     Active Substance: AMLODIPINE BESYLATE
  8. OMEPRAZOLE. [Concomitant]
     Active Substance: OMEPRAZOLE
  9. METFORMIN [Concomitant]
     Active Substance: METFORMIN HYDROCHLORIDE
  10. ACECARDOL [Concomitant]
     Active Substance: ASPIRIN
  11. EUTHYROX [Concomitant]
     Active Substance: LEVOTHYROXINE SODIUM

REACTIONS (1)
  - Pneumonia [Recovered/Resolved]

NARRATIVE: CASE EVENT DATE: 201706
